FAERS Safety Report 6316291-6 (Version None)
Quarter: 2009Q3

REPORT INFORMATION
  Report Type: 
  Country: None (occurrence: None)
  Receive Date: 20090820
  Receipt Date: 20090810
  Transmission Date: 20100115
  Serious: Yes (Congenital Anomaly)
  Sender: FDA-Public Use
  Company Number: US-GILEAD-2009-0023636

PATIENT
  Sex: Female
  Weight: 2.27 kg

DRUGS (5)
  1. TRUVADA [Suspect]
     Route: 064
     Dates: start: 20060508, end: 20081116
  2. TRUVADA [Suspect]
     Route: 064
     Dates: start: 20081117, end: 20090710
  3. EFAVIRENZ [Suspect]
     Route: 048
     Dates: start: 20060509, end: 20081116
  4. ATAZANAVIR [Concomitant]
     Dates: start: 20081117, end: 20090710
  5. RITONAVIR [Concomitant]
     Route: 064
     Dates: start: 20081117, end: 20090710

REACTIONS (1)
  - VENTRICULAR SEPTAL DEFECT [None]
